FAERS Safety Report 6837594-2 (Version None)
Quarter: 2010Q3

REPORT INFORMATION
  Report Type: 
  Country: None (occurrence: None)
  Receive Date: 20100713
  Receipt Date: 20070516
  Transmission Date: 20110219
  Serious: No
  Sender: FDA-Public Use
  Company Number: US-PFIZER INC-2007040379

PATIENT
  Sex: Female
  Weight: 53 kg

DRUGS (9)
  1. CHANTIX [Suspect]
     Indication: SMOKING CESSATION THERAPY
     Dates: start: 20070513
  2. SPIRIVA [Suspect]
     Indication: CHRONIC OBSTRUCTIVE PULMONARY DISEASE
  3. AMPICILLIN [Suspect]
     Indication: URINARY TRACT INFECTION
  4. ALBUTEROL [Concomitant]
  5. ADVAIR DISKUS 100/50 [Concomitant]
  6. PREDNISONE [Concomitant]
  7. ACETYLSALICYLIC ACID [Concomitant]
  8. PROCARDIA [Concomitant]
     Indication: HYPERTENSION
  9. CELEBREX [Concomitant]

REACTIONS (5)
  - DRUG INEFFECTIVE [None]
  - NAUSEA [None]
  - PATHOGEN RESISTANCE [None]
  - POLLAKIURIA [None]
  - URINARY TRACT INFECTION [None]
